FAERS Safety Report 6103392-0 (Version None)
Quarter: 2009Q1

REPORT INFORMATION
  Report Type: 
  Country: None (occurrence: None)
  Receive Date: 20090302
  Receipt Date: 20090220
  Transmission Date: 20090719
  Serious: Yes (Hospitalization)
  Sender: FDA-Public Use
  Company Number: 2008SP002401

PATIENT
  Age: 20 Year
  Sex: Female

DRUGS (5)
  1. LUNESTA [Suspect]
     Indication: ANXIETY
     Dosage: 0.3 MG; ORAL
     Route: 048
     Dates: start: 20080805, end: 20081001
  2. HYDROCODONE BITARTRATE [Concomitant]
  3. IBUPROFEN [Concomitant]
  4. MULTI-VITAMINS [Concomitant]
  5. IBUPROFEN TABLETS [Concomitant]

REACTIONS (18)
  - ABDOMINAL PAIN [None]
  - ABORTION SPONTANEOUS [None]
  - ANAEMIA [None]
  - BACTERIA URINE [None]
  - BLOOD URINE PRESENT [None]
  - CERVICAL DYSPLASIA [None]
  - ENDOMETRIAL HYPERTROPHY [None]
  - ENDOMETRITIS DECIDUAL [None]
  - INFECTION [None]
  - INTRA-UTERINE DEATH [None]
  - MATERNAL DRUGS AFFECTING FOETUS [None]
  - NEUTROPHIL COUNT INCREASED [None]
  - OLIGOHYDRAMNIOS [None]
  - OVARIAN CYST [None]
  - PREMATURE RUPTURE OF MEMBRANES [None]
  - PYREXIA [None]
  - URINE LEUKOCYTE ESTERASE POSITIVE [None]
  - WHITE BLOOD CELL COUNT INCREASED [None]
